FAERS Safety Report 8879901 (Version 1)
Quarter: 2012Q4

REPORT INFORMATION
  Report Type: 
  Country: CA (occurrence: CA)
  Receive Date: 20121031
  Receipt Date: 20121031
  Transmission Date: 20130627
  Serious: Yes (Death)
  Sender: FDA-Public Use
  Company Number: CA-ELI_LILLY_AND_COMPANY-CA201210006127

PATIENT
  Age: 70 Year
  Sex: Female

DRUGS (16)
  1. FORTEO [Suspect]
     Indication: OSTEOPOROSIS
     Dosage: 20 ug, qd
     Route: 058
     Dates: start: 20111028, end: 201207
  2. DICLOFENAC [Concomitant]
  3. PRADAXA [Concomitant]
  4. PREDNISONE [Concomitant]
  5. VERAPAMIL [Concomitant]
  6. RYTHMOL [Concomitant]
  7. SYNTHROID [Concomitant]
  8. METFORMIN [Concomitant]
  9. FOSAMAX [Concomitant]
  10. ATORVASTATIN [Concomitant]
  11. CALCIUM [Concomitant]
  12. FUROSEMIDE [Concomitant]
  13. OMEPRAZOLE [Concomitant]
  14. VITAMIN D NOS [Concomitant]
  15. GLICLAZIDE [Concomitant]
  16. SYMBICORT [Concomitant]

REACTIONS (1)
  - Death [Fatal]
